FAERS Safety Report 7646197-1 (Version None)
Quarter: 2011Q3

REPORT INFORMATION
  Report Type: 
  Country: None (occurrence: None)
  Receive Date: 20110801
  Receipt Date: 20110720
  Transmission Date: 20111222
  Serious: No
  Sender: FDA-Public Use
  Company Number: US-BIOGENIDEC-2011BI027371

PATIENT
  Age: 53 Year
  Sex: Female

DRUGS (6)
  1. TYSABRI [Suspect]
     Route: 042
     Dates: start: 20030201, end: 20050201
  2. AVONEX [Concomitant]
     Indication: MULTIPLE SCLEROSIS
     Route: 030
     Dates: start: 20101209
  3. AVONEX [Concomitant]
     Route: 030
     Dates: start: 19971106, end: 20100106
  4. AVONEX [Concomitant]
     Route: 030
     Dates: end: 20100108
  5. TYSABRI [Suspect]
     Indication: MULTIPLE SCLEROSIS
     Route: 042
     Dates: start: 20110222
  6. TYSABRI [Suspect]
     Route: 042
     Dates: start: 20100420, end: 20100923

REACTIONS (4)
  - FATIGUE [None]
  - CANDIDIASIS [None]
  - MULTIPLE SCLEROSIS [None]
  - ABDOMINAL DISCOMFORT [None]
